FAERS Safety Report 7479297-X (Version None)
Quarter: 2011Q2

REPORT INFORMATION
  Report Type: 
  Country: None (occurrence: None)
  Receive Date: 20110513
  Receipt Date: 20110510
  Transmission Date: 20111010
  Serious: Yes (Hospitalization, Other)
  Sender: FDA-Public Use
  Company Number: US-PFIZER INC-2011100730

PATIENT
  Sex: Female
  Weight: 77.098 kg

DRUGS (5)
  1. DILANTIN [Suspect]
     Indication: EPILEPSY
     Dosage: 400 MG DAILY (200MG IN THE MORNING AND 200 MG IN THE EVENING)
     Route: 048
     Dates: start: 19590101
  2. DILANTIN [Suspect]
     Dosage: 300 MG, 1X/DAY AT NIGHT
  3. METFORMIN [Concomitant]
     Indication: DIABETES MELLITUS
     Dosage: 100 MG, UNK
  4. LOSARTAN [Concomitant]
     Indication: HYPERTENSION
     Dosage: 50 MG, UNK
  5. ZOCOR [Concomitant]
     Indication: BLOOD CHOLESTEROL INCREASED
     Dosage: 80 MG, UNK

REACTIONS (5)
  - DRUG LEVEL INCREASED [None]
  - CEREBROVASCULAR ACCIDENT [None]
  - ASTHENIA [None]
  - DYSSTASIA [None]
  - WEIGHT DECREASED [None]
